FAERS Safety Report 17357469 (Version 4)
Quarter: 2022Q4

REPORT INFORMATION
  Report Type: Spontaneous
  Country: JP (occurrence: JP)
  Receive Date: 20200131
  Receipt Date: 20221122
  Transmission Date: 20230112
  Serious: Yes (Other)
  Sender: FDA-Public Use
  Company Number: None

PATIENT
  Age: 11 Month
  Sex: Female
  Weight: 7.08 kg

DRUGS (7)
  1. SABRIL [Suspect]
     Active Substance: VIGABATRIN
     Indication: Infantile spasms
     Dosage: 500 MG, BID
     Route: 048
     Dates: start: 20190510, end: 20190827
  2. SABRIL [Suspect]
     Active Substance: VIGABATRIN
     Dosage: 175 MG, BID
     Route: 048
     Dates: start: 20190426, end: 20190502
  3. SABRIL [Suspect]
     Active Substance: VIGABATRIN
     Dosage: 350 MG, BID
     Route: 048
     Dates: start: 20190503, end: 20190509
  4. VALPROATE SODIUM [Concomitant]
     Active Substance: VALPROATE SODIUM
     Indication: Infantile spasms
     Dosage: 200 MG
     Route: 048
     Dates: start: 20190403
  5. ZONISAMIDE [Concomitant]
     Active Substance: ZONISAMIDE
     Indication: Infantile spasms
     Dosage: DAILY DOSE: 15 MG
     Route: 048
     Dates: start: 20190410, end: 20190416
  6. ZONISAMIDE [Concomitant]
     Active Substance: ZONISAMIDE
     Dosage: DAILY DOSE: 30 MG
     Route: 048
     Dates: start: 20190417, end: 20190709
  7. ZONISAMIDE [Concomitant]
     Active Substance: ZONISAMIDE
     Dosage: DAILY DOSE: 50 MG
     Route: 048
     Dates: start: 20190710

REACTIONS (4)
  - Retinogram abnormal [Recovering/Resolving]
  - Toxic encephalopathy [Unknown]
  - Nasopharyngitis [Recovered/Resolved]
  - Upper respiratory tract inflammation [Recovered/Resolved]

NARRATIVE: CASE EVENT DATE: 20190502
